FAERS Safety Report 24116106 (Version 1)
Quarter: 2024Q3

REPORT INFORMATION
  Report Type: Spontaneous
  Country: US (occurrence: US)
  Receive Date: 20240722
  Receipt Date: 20240722
  Transmission Date: 20241017
  Serious: Yes (Other)
  Sender: BAXTER
  Company Number: US-BAXTER-2024BAX021504

PATIENT

DRUGS (1)
  1. NITROGLYCERIN IN DEXTROSE [Suspect]
     Active Substance: NITROGLYCERIN
     Indication: Catheterisation cardiac
     Dosage: 50 MCG OF NITROGLYCERINE 400 MCG/ML X 2 DOSES
     Route: 065

REACTIONS (1)
  - Cardiac arrest [Unknown]
